FAERS Safety Report 5240944-4 (Version None)
Quarter: 2007Q1

REPORT INFORMATION
  Report Type: 
  Country: None (occurrence: None)
  Receive Date: 20070219
  Receipt Date: 20070207
  Transmission Date: 20070707
  Serious: Yes (Hospitalization)
  Sender: FDA-Public Use
  Company Number: FR-AMGEN-UK206663

PATIENT
  Age: 43 Year
  Sex: Male
  Weight: 65 kg

DRUGS (11)
  1. NEUPOGEN [Suspect]
     Indication: CHEMOTHERAPY
     Route: 058
     Dates: start: 20060913, end: 20061015
  2. DAUNORUBICIN HCL [Suspect]
     Route: 042
     Dates: start: 20060913
  3. BACTRIM [Concomitant]
     Route: 048
     Dates: start: 20050901
  4. POSACONAZOLE [Concomitant]
     Route: 048
     Dates: start: 20050901
  5. EPIVIR [Concomitant]
     Route: 048
  6. NORVIR [Concomitant]
     Route: 048
  7. ZIAGEN [Concomitant]
     Route: 048
  8. RIMIFON [Concomitant]
     Route: 048
     Dates: start: 20060301
  9. MOXIFLOXACIN HYDROCHLORIDE [Concomitant]
     Route: 048
     Dates: start: 20060301
  10. MYAMBUTOL [Concomitant]
     Route: 048
  11. NEORECORMON [Concomitant]

REACTIONS (3)
  - BLOOD ALKALINE PHOSPHATASE INCREASED [None]
  - GAMMA-GLUTAMYLTRANSFERASE INCREASED [None]
  - PYREXIA [None]
